FAERS Safety Report 8572008 (Version 2)
Quarter: 2014Q1

REPORT INFORMATION
  Report Type: Spontaneous
  Country: US (occurrence: US)
  Receive Date: 20120521
  Receipt Date: 20140318
  Transmission Date: 20141002
  Serious: No
  Sender: FDA-Public Use
  Company Number: US-ASTRAZENECA-2011SE23003

PATIENT
  Age: 85 Year
  Sex: Female
  Weight: 55.3 kg

DRUGS (5)
  1. NEXIUM [Suspect]
     Indication: GASTROOESOPHAGEAL REFLUX DISEASE
     Route: 048
     Dates: start: 2011, end: 20140304
  2. PRILOSEC OTC [Suspect]
     Indication: GASTROOESOPHAGEAL REFLUX DISEASE
     Route: 048
     Dates: start: 2006, end: 2011
  3. PRILOSEC [Suspect]
     Route: 048
  4. LIPITOR [Concomitant]
     Indication: BLOOD CHOLESTEROL ABNORMAL
  5. AMLODIPINE [Concomitant]
     Indication: HYPERTENSION

REACTIONS (6)
  - Asthma [Unknown]
  - Cough [Recovered/Resolved]
  - Body height decreased [Unknown]
  - Malaise [Unknown]
  - Intentional drug misuse [Not Recovered/Not Resolved]
  - Drug ineffective [Unknown]
